FAERS Safety Report 25451962 (Version 2)
Quarter: 2025Q2

REPORT INFORMATION
  Report Type: Spontaneous
  Country: US (occurrence: US)
  Receive Date: 20250618
  Receipt Date: 20250619
  Transmission Date: 20250717
  Serious: Yes (Death, Other)
  Sender: ARGENX BVBA
  Company Number: US-ARGENX-2025-ARGX-US007849

PATIENT

DRUGS (5)
  1. VYVGART [Suspect]
     Active Substance: EFGARTIGIMOD ALFA-FCAB
     Indication: Pemphigus
     Dosage: 10 MG/KG, 1/WEEK FOR 4 WEEKS
     Route: 042
  2. VYVGART [Suspect]
     Active Substance: EFGARTIGIMOD ALFA-FCAB
     Dosage: 10 MG/KG, Q4WEEKS, SINGLE DOSE
     Route: 042
  3. Immunoglobulin [Concomitant]
     Indication: Pemphigus
     Dosage: 2 UNK, Q4WEEKS
     Route: 042
  4. MYCOPHENOLATE MOFETIL [Concomitant]
     Active Substance: MYCOPHENOLATE MOFETIL
     Indication: Pemphigus
     Dosage: 1.5 G, DAILY
     Route: 048
  5. PREDNISONE [Concomitant]
     Active Substance: PREDNISONE
     Indication: Pemphigus
     Dosage: 20 MG, DAILY (TAPER OFF)
     Route: 065

REACTIONS (6)
  - Cardiac disorder [Fatal]
  - Skin ulcer [Unknown]
  - Pseudomonas infection [Unknown]
  - Staphylococcal infection [Unknown]
  - Off label use [Unknown]
  - Drug effective for unapproved indication [Unknown]
